FAERS Safety Report 11273109 (Version 1)
Quarter: 2015Q3

REPORT INFORMATION
  Report Type: Spontaneous
  Country: US (occurrence: None)
  Receive Date: 20150714
  Receipt Date: 20150714
  Transmission Date: 20151125
  Serious: Yes (Disabling, Other)
  Sender: FDA-Public Use
  Company Number: None

PATIENT
  Age: 37 Year
  Sex: Female
  Weight: 49.9 kg

DRUGS (6)
  1. SEROQUEL [Suspect]
     Active Substance: QUETIAPINE FUMARATE
     Indication: ANXIETY
     Dosage: SEROQUEL, ONCE DAILY, TAKEN BY MOUTH
     Route: 048
     Dates: start: 20150101, end: 20150113
  2. FISH OIL [Concomitant]
     Active Substance: FISH OIL
  3. PROZAC [Concomitant]
     Active Substance: FLUOXETINE HYDROCHLORIDE
  4. MULTIVITAMIN [Concomitant]
     Active Substance: VITAMINS
  5. SEROQUEL [Suspect]
     Active Substance: QUETIAPINE FUMARATE
     Indication: INSOMNIA
     Dosage: SEROQUEL, ONCE DAILY, TAKEN BY MOUTH
     Route: 048
     Dates: start: 20150101, end: 20150113
  6. DORYX [Concomitant]
     Active Substance: DOXYCYCLINE HYCLATE

REACTIONS (3)
  - Muscle spasms [None]
  - Insomnia [None]
  - Restless legs syndrome [None]

NARRATIVE: CASE EVENT DATE: 20150701
